FAERS Safety Report 8020073-7 (Version None)
Quarter: 2012Q1

REPORT INFORMATION
  Report Type: 
  Country: None (occurrence: None)
  Receive Date: 20120103
  Receipt Date: 20111110
  Transmission Date: 20120608
  Serious: Yes (Hospitalization, Other)
  Sender: FDA-Public Use
  Company Number: US-PURDUE-USA-2011-0079923

PATIENT
  Sex: Female

DRUGS (2)
  1. OXYCONTIN [Suspect]
     Indication: ANKYLOSING SPONDYLITIS
  2. OXYCONTIN [Suspect]
     Indication: PAIN MANAGEMENT
     Dosage: UNK
     Route: 048
     Dates: start: 20000801, end: 20040101

REACTIONS (5)
  - DENTAL CARIES [None]
  - DRUG DEPENDENCE [None]
  - LETHARGY [None]
  - AMNESIA [None]
  - DEPRESSION [None]
